FAERS Safety Report 4368070-7 (Version None)
Quarter: 2004Q2

REPORT INFORMATION
  Report Type: 
  Country: None (occurrence: None)
  Receive Date: 20040602
  Receipt Date: 20040526
  Transmission Date: 20050107
  Serious: Yes (Hospitalization)
  Sender: FDA-Public Use
  Company Number: 200415485GDDC

PATIENT
  Age: 78 Year
  Sex: Female
  Weight: 54 kg

DRUGS (7)
  1. FLUDEX [Suspect]
     Indication: HYPERTENSION
     Route: 048
     Dates: start: 20040401, end: 20040419
  2. COVERSYL [Concomitant]
     Dates: end: 20040419
  3. LIPANTHYL ^THISSEN^ [Concomitant]
  4. CARDEGIC [Concomitant]
  5. INIPOMP [Concomitant]
  6. RIVOTRIL [Concomitant]
  7. BUDESONIDE [Concomitant]

REACTIONS (5)
  - CONFUSIONAL STATE [None]
  - FEELING ABNORMAL [None]
  - HYPOCHLORAEMIA [None]
  - HYPOKALAEMIA [None]
  - HYPONATRAEMIA [None]
